FAERS Safety Report 9597782 (Version 3)
Quarter: 2014Q3

REPORT INFORMATION
  Report Type: Spontaneous
  Country: CY (occurrence: CY)
  Receive Date: 20131004
  Receipt Date: 20140912
  Transmission Date: 20150326
  Serious: Yes (Other)
  Sender: FDA-Public Use
  Company Number: CY-ABBVIE-13P-041-1154146-00

PATIENT
  Age: 18 Year
  Sex: Male

DRUGS (3)
  1. HUMIRA [Suspect]
     Active Substance: ADALIMUMAB
     Indication: ANKYLOSING SPONDYLITIS
     Route: 058
     Dates: start: 201307, end: 201309
  2. NSAID^S [Concomitant]
     Active Substance: UNSPECIFIED INGREDIENT
     Indication: ANKYLOSING SPONDYLITIS
     Dates: start: 201304
  3. METHOTREXATE [Concomitant]
     Active Substance: METHOTREXATE
     Indication: ANKYLOSING SPONDYLITIS
     Dosage: 12.5MG / WEEK
     Route: 048
     Dates: start: 201308

REACTIONS (1)
  - Deafness [Recovering/Resolving]

NARRATIVE: CASE EVENT DATE: 201309
